FAERS Safety Report 4584920-3 (Version None)
Quarter: 2005Q1

REPORT INFORMATION
  Report Type: 
  Country: None (occurrence: None)
  Receive Date: 20050217
  Receipt Date: 20041112
  Transmission Date: 20050727
  Serious: No
  Sender: FDA-Public Use
  Company Number: US-GLAXOSMITHKLINE-A0533746A

PATIENT
  Age: 75 Year
  Sex: Female

DRUGS (9)
  1. WELLBUTRIN XL [Suspect]
     Indication: DEPRESSION
     Dosage: 300MG PER DAY
     Route: 048
     Dates: start: 20041001
  2. NAMENDA [Concomitant]
  3. FOLIC ACID [Concomitant]
  4. B1 (VITAMIN) [Concomitant]
  5. MULTI-VITAMIN [Concomitant]
  6. ARICEPT [Concomitant]
  7. VYTONE [Concomitant]
  8. DIOVAN [Concomitant]
  9. B12 [Concomitant]

REACTIONS (6)
  - BALANCE DISORDER [None]
  - CONTUSION [None]
  - DEPRESSIVE SYMPTOM [None]
  - DRUG INEFFECTIVE [None]
  - DRY MOUTH [None]
  - FALL [None]
